FAERS Safety Report 5330773-5 (Version None)
Quarter: 2007Q2

REPORT INFORMATION
  Report Type: 
  Country: None (occurrence: None)
  Receive Date: 20070522
  Receipt Date: 20070510
  Transmission Date: 20071010
  Serious: Yes (Hospitalization)
  Sender: FDA-Public Use
  Company Number: JP-JNJFOC-20070307076

PATIENT
  Age: 33 Year
  Sex: Female

DRUGS (4)
  1. ORTHO-NOVUM 1/35-28 [Suspect]
     Indication: ENDOMETRIOSIS
     Route: 048
     Dates: start: 20050516, end: 20070318
  2. ORTHO-NOVUM 1/35-28 [Suspect]
     Indication: MENSTRUATION IRREGULAR
     Route: 048
     Dates: start: 20050516, end: 20070318
  3. ORTHO-NOVUM 1/35-28 [Suspect]
     Indication: MENORRHAGIA
     Route: 048
     Dates: start: 20050516, end: 20070318
  4. ORTHO-NOVUM 1/35-28 [Suspect]
     Indication: OVARIAN HAEMORRHAGE
     Route: 048
     Dates: start: 20050516, end: 20070318

REACTIONS (2)
  - ANAEMIA [None]
  - MENOMETRORRHAGIA [None]
